FAERS Safety Report 7772682-8 (Version None)
Quarter: 2011Q3

REPORT INFORMATION
  Report Type: 
  Country: None (occurrence: None)
  Receive Date: 20110922
  Receipt Date: 20100418
  Transmission Date: 20111222
  Serious: No
  Sender: FDA-Public Use
  Company Number: US-ASTRAZENECA-2009SE12542

PATIENT
  Age: 591 Month
  Sex: Male
  Weight: 122 kg

DRUGS (10)
  1. VALIUM [Concomitant]
     Route: 048
     Dates: start: 19931001
  2. SEROQUEL [Suspect]
     Route: 048
     Dates: start: 19960601
  3. KLONOPIN [Concomitant]
     Route: 048
     Dates: start: 19931001
  4. SEROQUEL [Suspect]
     Indication: POST-TRAUMATIC STRESS DISORDER
     Dosage: 25-100 MG, 25 MG QID
     Route: 048
     Dates: start: 19931001
  5. TRILAFON [Concomitant]
     Route: 048
     Dates: start: 19931001
  6. WELLBUTRIN SR [Concomitant]
     Route: 048
     Dates: start: 19931001
  7. ZOLOFT [Concomitant]
     Route: 048
     Dates: start: 19931001
  8. PAMELOR [Concomitant]
     Route: 048
     Dates: start: 19931001
  9. THORAZINE [Concomitant]
     Indication: BIPOLAR DISORDER
     Dates: start: 19780101
  10. DEPAKOTE [Concomitant]
     Route: 048
     Dates: start: 19931001

REACTIONS (3)
  - DIABETIC COMPLICATION [None]
  - TYPE 2 DIABETES MELLITUS [None]
  - DIABETES MELLITUS [None]
